FAERS Safety Report 11238466 (Version 2)
Quarter: 2015Q3

REPORT INFORMATION
  Report Type: Spontaneous
  Country: GB (occurrence: GB)
  Receive Date: 20150705
  Receipt Date: 20150708
  Transmission Date: 20151125
  Serious: Yes (Death, Hospitalization)
  Sender: FDA-Public Use
  Company Number: GB-AMGEN-GBRSP2015065051

PATIENT
  Age: 76 Year
  Sex: Female

DRUGS (1)
  1. ARANESP [Suspect]
     Active Substance: DARBEPOETIN ALFA
     Indication: NEPHROGENIC ANAEMIA
     Dosage: 20 MUG, Q2WK
     Route: 065

REACTIONS (4)
  - Blood potassium increased [Fatal]
  - Hypertension [Unknown]
  - Bradycardia [Fatal]
  - Renal failure [Fatal]
